FAERS Safety Report 8601092-6 (Version None)
Quarter: 2012Q3

REPORT INFORMATION
  Report Type: 
  Country: None (occurrence: None)
  Receive Date: 20120817
  Receipt Date: 20120810
  Transmission Date: 20120928
  Serious: Yes (Other)
  Sender: FDA-Public Use
  Company Number: PHHY2012GB069547

PATIENT
  Age: 64 Year
  Sex: Male

DRUGS (3)
  1. OXALIPLATIN [Suspect]
     Indication: ADENOCARCINOMA
  2. NEUPOGEN [Concomitant]
  3. FLUOROURACIL [Suspect]
     Indication: ADENOCARCINOMA

REACTIONS (6)
  - PORTAL HYPERTENSION [None]
  - INTESTINAL HAEMORRHAGE [None]
  - BONE MARROW FAILURE [None]
  - METASTASES TO LIVER [None]
  - INTESTINAL VARICES [None]
  - THROMBOCYTOPENIA [None]
